FAERS Safety Report 9475213 (Version 1)
Quarter: 2013Q3

REPORT INFORMATION
  Report Type: Spontaneous
  Country: IT (occurrence: IT)
  Receive Date: 20130825
  Receipt Date: 20130825
  Transmission Date: 20140515
  Serious: Yes (Hospitalization)
  Sender: FDA-Public Use
  Company Number: IT-MYLANLABS-2013S1018198

PATIENT
  Age: 84 Year
  Sex: Male

DRUGS (12)
  1. INTANZA [Suspect]
     Route: 065
  2. TRAMADOL [Interacting]
     Indication: BACK PAIN
     Dosage: 25 MG/DAY
     Route: 065
  3. ALLOPURINOL [Concomitant]
     Dosage: 150 MG/DAY
     Route: 065
  4. DIGOXIN [Concomitant]
     Dosage: 0.625 MG/DAY
     Route: 065
  5. FUROSEMIDE [Concomitant]
     Dosage: 50 MG/DAY
     Route: 065
  6. PRAMIPEXOLE [Concomitant]
     Dosage: 0.18 MG/DAY
     Route: 065
  7. OLMESARTAN MEDOXOMIL [Concomitant]
     Dosage: 20 MG/DAY
     Route: 065
  8. PANTOPRAZOLE [Concomitant]
     Dosage: 20 MG/DAY
     Route: 065
  9. REPAGLINIDE [Concomitant]
     Dosage: 1.5 MG/DAY
     Route: 065
  10. DILTIAZEM [Concomitant]
     Dosage: 240 MG/DAY
     Route: 065
  11. SALMETEROL [Concomitant]
     Route: 065
  12. FLUTICASONE PROPIONATE [Concomitant]
     Route: 065

REACTIONS (5)
  - Hallucination [Recovered/Resolved]
  - Drug interaction [Recovered/Resolved]
  - Psychomotor hyperactivity [Unknown]
  - Hypotension [Unknown]
  - Malaise [Unknown]
